FAERS Safety Report 7502510-7 (Version None)
Quarter: 2011Q2

REPORT INFORMATION
  Report Type: 
  Country: None (occurrence: None)
  Receive Date: 20110523
  Receipt Date: 20110523
  Transmission Date: 20111010
  Serious: Yes (Other)
  Sender: FDA-Public Use
  Company Number: None

PATIENT
  Sex: Female
  Weight: 61.4 kg

DRUGS (2)
  1. COPAXONE [Suspect]
     Indication: MULTIPLE SCLEROSIS
     Dosage: PRE FILLED SYRINGE DAILY CAPOXONE ENCLOSURE STRIP
     Dates: start: 20110422
  2. COPAXONE [Suspect]
     Indication: MULTIPLE SCLEROSIS
     Dosage: PRE FILLED SYRINGE DAILY CAPOXONE ENCLOSURE STRIP
     Dates: start: 20110509

REACTIONS (2)
  - URTICARIA [None]
  - DRUG HYPERSENSITIVITY [None]
